FAERS Safety Report 9704502 (Version 1)
Quarter: 2013Q4

REPORT INFORMATION
  Report Type: Spontaneous
  Country: US (occurrence: US)
  Receive Date: 20131122
  Receipt Date: 20131122
  Transmission Date: 20140711
  Serious: No
  Sender: FDA-Public Use
  Company Number: US-PFIZER INC-2013331911

PATIENT
  Sex: Male

DRUGS (9)
  1. COLESTID [Suspect]
     Dosage: UNK
  2. LYRICA [Suspect]
     Dosage: UNK
  3. VIOXX [Suspect]
     Dosage: UNK
  4. ZELNORM [Suspect]
     Dosage: UNK
  5. ABILIFY [Suspect]
     Dosage: 2 MG, 2X/DAY
     Route: 048
  6. CEFEPIME HYDROCHLORIDE [Suspect]
     Dosage: UNK
  7. DELSYM [Suspect]
     Dosage: UNK
  8. GASTROGRAFIN [Suspect]
     Dosage: UNK
  9. METHADONE HYDROCHLORIDE [Suspect]
     Dosage: UNK

REACTIONS (1)
  - Drug hypersensitivity [Unknown]
